FAERS Safety Report 6223073-2 (Version None)
Quarter: 2009Q2

REPORT INFORMATION
  Report Type: 
  Country: None (occurrence: None)
  Receive Date: 20090609
  Receipt Date: 20090519
  Transmission Date: 20091009
  Serious: Yes (Hospitalization)
  Sender: FDA-Public Use
  Company Number: JPI-P-006970

PATIENT
  Sex: Female
  Weight: 3 kg

DRUGS (11)
  1. FLUVOXAMINE MALEATE [Suspect]
     Indication: DRUG EXPOSURE DURING PREGNANCY
     Dosage: (100 MG, 1 D), TRANSPLACENTAL
     Route: 064
     Dates: end: 20090325
  2. ESTAZOLAM [Suspect]
     Indication: DRUG EXPOSURE DURING PREGNANCY
     Dosage: (4 MG, 1 D), TRANSPLACENTAL
     Route: 064
     Dates: end: 20090325
  3. CHLORPROMAZINE [Suspect]
     Indication: DRUG EXPOSURE DURING PREGNANCY
     Dosage: (150 MG, 1 D), TRANSPLACENTAL
     Route: 064
     Dates: end: 20090325
  4. CLONAZEPAM [Suspect]
     Indication: DRUG EXPOSURE DURING PREGNANCY
     Dosage: (1.5 MG, 1 D), TRANSPLACENTAL
     Route: 064
     Dates: end: 20090325
  5. LORAZEPAM [Suspect]
     Indication: DRUG EXPOSURE DURING PREGNANCY
     Dosage: (1 MG, 1 D), TRANSPLACENTAL
     Route: 064
     Dates: end: 20090325
  6. ZOLPIDEM TARTRATE [Suspect]
     Indication: DRUG EXPOSURE DURING PREGNANCY
     Dosage: (10 MG, 1 D), TRANSPLACENTAL
     Route: 064
     Dates: end: 20090325
  7. TRIAZOLAM [Suspect]
     Indication: DRUG EXPOSURE DURING PREGNANCY
     Dosage: (0.25 MG, 1 D), TRANSPLACENTAL
     Route: 064
     Dates: end: 20090325
  8. RISPERIDONE [Suspect]
     Indication: DRUG EXPOSURE DURING PREGNANCY
     Dosage: (2 MG, 1 D), TRANSPLACENTAL
     Route: 064
     Dates: end: 20090325
  9. RITODRINE HYDROCHLORIDE [Concomitant]
  10. MAGNESIUM OXIDE [Concomitant]
  11. FEXOFENADINE HYDROCHLORIDE [Concomitant]

REACTIONS (4)
  - DRUG WITHDRAWAL SYNDROME NEONATAL [None]
  - MATERNAL DRUGS AFFECTING FOETUS [None]
  - PREMATURE BABY [None]
  - SOMNOLENCE NEONATAL [None]
